FAERS Safety Report 11761530 (Version 1)
Quarter: 2015Q4

REPORT INFORMATION
  Report Type: Spontaneous
  Country: IE (occurrence: IE)
  Receive Date: 20151120
  Receipt Date: 20151120
  Transmission Date: 20160304
  Serious: Yes (Disabling)
  Sender: FDA-Public Use
  Company Number: IE-TEVA-608981ACC

PATIENT
  Sex: Male

DRUGS (3)
  1. LEUCOVORIN-TEVA [Suspect]
     Active Substance: LEUCOVORIN
     Route: 065
     Dates: end: 20130821
  2. FLUOROURACIL (G) [Suspect]
     Active Substance: FLUOROURACIL
     Route: 065
     Dates: end: 20130821
  3. ELOXATIN [Suspect]
     Active Substance: OXALIPLATIN
     Route: 065
     Dates: end: 20130821

REACTIONS (6)
  - Tremor [Not Recovered/Not Resolved]
  - Neuropathy peripheral [Not Recovered/Not Resolved]
  - Hypokinesia [Recovering/Resolving]
  - Pain in extremity [Not Recovered/Not Resolved]
  - Tremor [None]
  - Peripheral coldness [Not Recovered/Not Resolved]
